FAERS Safety Report 16167931 (Version 1)
Quarter: 2019Q2

REPORT INFORMATION
  Report Type: Spontaneous
  Country: US (occurrence: US)
  Receive Date: 20190408
  Receipt Date: 20190408
  Transmission Date: 20190711
  Serious: No
  Sender: FDA-Public Use
  Company Number: US-ACLARIS THERAPEUTICS-2019US000867

PATIENT
  Age: 72 Year
  Sex: Female

DRUGS (4)
  1. ESKATA [Suspect]
     Active Substance: HYDROGEN PEROXIDE
     Dosage: 1 DF, UNK
     Route: 061
     Dates: start: 20181116, end: 20181116
  2. ESKATA [Suspect]
     Active Substance: HYDROGEN PEROXIDE
     Indication: SEBORRHOEIC KERATOSIS
     Dosage: 1 DF, UNK
     Route: 061
     Dates: start: 20181005, end: 20181005
  3. ATORVASTATIN [Concomitant]
     Active Substance: ATORVASTATIN
     Indication: PRODUCT USED FOR UNKNOWN INDICATION
     Dosage: UNK
  4. ESKATA [Suspect]
     Active Substance: HYDROGEN PEROXIDE
     Dosage: 1 DF, UNK
     Route: 061
     Dates: start: 20190102, end: 20190102

REACTIONS (2)
  - Product complaint [Unknown]
  - Drug ineffective [Unknown]
